FAERS Safety Report 7300951-4 (Version None)
Quarter: 2011Q1

REPORT INFORMATION
  Report Type: 
  Country: None (occurrence: None)
  Receive Date: 20110218
  Receipt Date: 20110208
  Transmission Date: 20110831
  Serious: Yes (Other)
  Sender: FDA-Public Use
  Company Number: GB-BAXTER-2011BH003136

PATIENT
  Age: 50 Year

DRUGS (3)
  1. EXTRANEAL [Suspect]
     Indication: PERITONEAL DIALYSIS
     Route: 033
     Dates: start: 20110201, end: 20110101
  2. DIANEAL [Suspect]
     Route: 033
     Dates: start: 20110201, end: 20110101
  3. DIANEAL [Suspect]
     Indication: PERITONEAL DIALYSIS
     Route: 033
     Dates: start: 20110201, end: 20110101

REACTIONS (3)
  - VOMITING [None]
  - BACTERAEMIA [None]
  - PERITONEAL CLOUDY EFFLUENT [None]
